FAERS Safety Report 9071690 (Version 1)
Quarter: 2013Q1

REPORT INFORMATION
  Report Type: Spontaneous
  Country: US (occurrence: US)
  Receive Date: 20130129
  Receipt Date: 20130129
  Transmission Date: 20140127
  Serious: Yes (Hospitalization)
  Sender: FDA-Public Use
  Company Number: US-ABBOTT-12P-163-0929633-00

PATIENT
  Age: 29 None
  Sex: Male

DRUGS (6)
  1. HUMIRA 40 MG/0.8 ML PEN [Suspect]
     Indication: CROHN^S DISEASE
     Dates: start: 201202
  2. BENTYL [Concomitant]
     Indication: CROHN^S DISEASE
  3. AZATHIOPRINE [Concomitant]
     Indication: CROHN^S DISEASE
  4. PENTASA [Concomitant]
     Indication: CROHN^S DISEASE
  5. ZESTRIL [Concomitant]
     Indication: HYPERTENSION
     Dates: start: 2012
  6. NORVASC [Concomitant]
     Indication: HYPERTENSION
     Dates: start: 2012

REACTIONS (1)
  - Rectal haemorrhage [Recovered/Resolved]
